FAERS Safety Report 16524217 (Version 3)
Quarter: 2019Q3

REPORT INFORMATION
  Report Type: Spontaneous
  Country: AT (occurrence: AT)
  Receive Date: 20190703
  Receipt Date: 20190731
  Transmission Date: 20191004
  Serious: Yes (Hospitalization, Other)
  Sender: FDA-Public Use
  Company Number: AT-JNJFOC-20190620586

PATIENT
  Age: 47 Year
  Sex: Female

DRUGS (20)
  1. RISPERDAL [Suspect]
     Active Substance: RISPERIDONE
     Indication: SCHIZOPHRENIA
     Route: 048
     Dates: start: 20090127, end: 201202
  2. AKINETON [Suspect]
     Active Substance: BIPERIDEN HYDROCHLORIDE
     Indication: PRODUCT USED FOR UNKNOWN INDICATION
     Route: 065
     Dates: start: 20180410, end: 20180412
  3. SOLIAN [Suspect]
     Active Substance: AMISULPRIDE
     Route: 065
     Dates: start: 20180408, end: 20180408
  4. RISPERDAL [Suspect]
     Active Substance: RISPERIDONE
     Route: 048
     Dates: start: 20090127, end: 201202
  5. TEMESTA                            /00273201/ [Concomitant]
     Active Substance: LORAZEPAM
     Route: 065
     Dates: start: 20180323, end: 20180326
  6. RISPERDAL [Suspect]
     Active Substance: RISPERIDONE
     Route: 048
     Dates: start: 20180411, end: 20180411
  7. SOLIAN [Suspect]
     Active Substance: AMISULPRIDE
     Indication: PRODUCT USED FOR UNKNOWN INDICATION
     Route: 065
     Dates: start: 20180407, end: 20180407
  8. HALDOL [Suspect]
     Active Substance: HALOPERIDOL
     Indication: SCHIZOPHRENIA
     Route: 048
     Dates: start: 20180323, end: 20180406
  9. HALDOL [Suspect]
     Active Substance: HALOPERIDOL
     Route: 065
     Dates: start: 20150520, end: 20150613
  10. TEMESTA                            /00273201/ [Concomitant]
     Active Substance: LORAZEPAM
     Indication: PRODUCT USED FOR UNKNOWN INDICATION
     Route: 030
     Dates: start: 20180321, end: 20180322
  11. HALOPERIDOL DECANOATE UNSPECIFIED [Concomitant]
     Route: 030
     Dates: start: 20180321, end: 20180322
  12. ZYPREXA [Concomitant]
     Active Substance: OLANZAPINE
     Indication: PRODUCT USED FOR UNKNOWN INDICATION
     Dosage: 1/2-0-1
     Route: 065
     Dates: start: 20180418, end: 20180420
  13. ZYPREXA [Concomitant]
     Active Substance: OLANZAPINE
     Route: 065
     Dates: start: 20180416, end: 20180417
  14. TEMESTA                            /00273201/ [Concomitant]
     Active Substance: LORAZEPAM
     Route: 065
     Dates: start: 20180329, end: 20180331
  15. TEMESTA                            /00273201/ [Concomitant]
     Active Substance: LORAZEPAM
     Dosage: 4, 5 MILLIGRAM, TAPERING DOWN
     Route: 065
     Dates: start: 20180413, end: 20180427
  16. TEMESTA                            /00273201/ [Concomitant]
     Active Substance: LORAZEPAM
     Route: 065
     Dates: start: 20180401, end: 20180402
  17. HALDOL [Suspect]
     Active Substance: HALOPERIDOL
     Route: 065
     Dates: start: 20180407, end: 20180407
  18. ZYPREXA [Concomitant]
     Active Substance: OLANZAPINE
     Route: 065
     Dates: start: 20180420
  19. RISPERDAL [Suspect]
     Active Substance: RISPERIDONE
     Route: 048
     Dates: start: 20180409, end: 20180411
  20. TEMESTA                            /00273201/ [Concomitant]
     Active Substance: LORAZEPAM
     Route: 065
     Dates: start: 20180327, end: 20180328

REACTIONS (5)
  - Joint injury [Unknown]
  - Parkinsonism [Recovered/Resolved]
  - Fall [Unknown]
  - Extrapyramidal disorder [Unknown]
  - Delirium [Recovered/Resolved]

NARRATIVE: CASE EVENT DATE: 20180404
